FAERS Safety Report 24574060 (Version 2)
Quarter: 2024Q4

REPORT INFORMATION
  Report Type: Spontaneous
  Country: NL (occurrence: NL)
  Receive Date: 20241104
  Receipt Date: 20241114
  Transmission Date: 20250115
  Serious: No
  Sender: BRISTOL-MYERS SQUIBB COMPANY
  Company Number: None

PATIENT
  Age: 54 Year
  Sex: Female
  Weight: 57 kg

DRUGS (6)
  1. TRIAMCINOLONE ACETONIDE [Suspect]
     Active Substance: TRIAMCINOLONE ACETONIDE
     Indication: External ear inflammation
     Dosage: TRIAMCINOLONE ACETONIDE OORDR 7.2/1MG/G; DOSE: 1 MG/G
     Dates: start: 20241011, end: 20241012
  2. TRIAMCINOLONE ACETONIDE [Suspect]
     Active Substance: TRIAMCINOLONE ACETONIDE
     Indication: Ear pruritus
  3. ACETIC ACID\TRIAMCINOLONE [Suspect]
     Active Substance: ACETIC ACID\TRIAMCINOLONE
     Indication: External ear inflammation
     Dosage: ACID EAR DROPS DMB 0,1% FNA OORDR 1MG/G
     Dates: start: 20241011, end: 20241012
  4. ACETIC ACID\TRIAMCINOLONE [Suspect]
     Active Substance: ACETIC ACID\TRIAMCINOLONE
     Indication: Ear pruritus
  5. ACETIC ACID [Suspect]
     Active Substance: ACETIC ACID
     Indication: External ear inflammation
     Dates: start: 20241011, end: 20241012
  6. ACETIC ACID [Suspect]
     Active Substance: ACETIC ACID
     Indication: Ear pruritus

REACTIONS (3)
  - Ear discomfort [Recovered/Resolved]
  - Hypoacusis [Recovered/Resolved]
  - Off label use [Unknown]
